FAERS Safety Report 13850515 (Version 1)
Quarter: 2017Q3

REPORT INFORMATION
  Report Type: Spontaneous
  Country: LU (occurrence: LU)
  Receive Date: 20170809
  Receipt Date: 20170809
  Transmission Date: 20171127
  Serious: Yes (Other)
  Sender: FDA-Public Use
  Company Number: LU-PFIZER INC-2017308289

PATIENT
  Age: 57 Year
  Sex: Male

DRUGS (3)
  1. NOVALGINE (METAMIZOLE SODIUM) [Suspect]
     Active Substance: METAMIZOLE SODIUM
     Dosage: 2 ML, UNK
     Route: 030
  2. XYLOCAINE #1 [Suspect]
     Active Substance: LIDOCAINE
     Dosage: 4 ML, UNK
     Route: 030
  3. FELDENE [Suspect]
     Active Substance: PIROXICAM
     Dosage: 1 ML, UNK
     Route: 030

REACTIONS (2)
  - Paralysis [Not Recovered/Not Resolved]
  - Radiculopathy [Unknown]
